FAERS Safety Report 10402284 (Version 1)
Quarter: 2014Q3

REPORT INFORMATION
  Report Type: Spontaneous
  Country: GB (occurrence: GB)
  Receive Date: 20140822
  Receipt Date: 20140822
  Transmission Date: 20150326
  Serious: Yes (Hospitalization)
  Sender: FDA-Public Use
  Company Number: GB-TEVA-501923ISR

PATIENT
  Age: 78 Year

DRUGS (14)
  1. FOSTAIR [Concomitant]
     Dosage: 100MICROGRAMS BECLOMETASONE AND 6MICROGRAMS FORMOTEROL
     Route: 055
  2. MOMETASONE [Concomitant]
     Active Substance: MOMETASONE
     Route: 045
  3. SALBUTAMOL [Concomitant]
     Active Substance: ALBUTEROL
     Route: 055
  4. LIVIAL [Concomitant]
     Active Substance: TIBOLONE
  5. AMITRIPTYLINE [Suspect]
     Active Substance: AMITRIPTYLINE
     Dates: start: 20140725, end: 20140725
  6. DOCUSATE [Concomitant]
     Active Substance: DOCUSATE
  7. DOXAZOSIN [Concomitant]
     Active Substance: DOXAZOSIN\DOXAZOSIN MESYLATE
  8. FUROSEMIDE. [Concomitant]
     Active Substance: FUROSEMIDE
  9. LORATADINE. [Concomitant]
     Active Substance: LORATADINE
  10. PARACETAMOL [Concomitant]
     Active Substance: ACETAMINOPHEN
  11. TOLTERODINE [Concomitant]
     Active Substance: TOLTERODINE
  12. TRAMADOL [Concomitant]
     Active Substance: TRAMADOL
  13. IBUPROFEN. [Concomitant]
     Active Substance: IBUPROFEN
  14. LOSARTAN [Concomitant]
     Active Substance: LOSARTAN

REACTIONS (2)
  - Dyspnoea [Unknown]
  - Tachycardia [Unknown]

NARRATIVE: CASE EVENT DATE: 20140726
